FAERS Safety Report 5795166-5 (Version None)
Quarter: 2008Q2

REPORT INFORMATION
  Report Type: 
  Country: None (occurrence: None)
  Receive Date: 20080630
  Receipt Date: 20080522
  Transmission Date: 20081010
  Serious: Yes (Other)
  Sender: FDA-Public Use
  Company Number: US-BRISTOL-MYERS SQUIBB COMPANY-14203087

PATIENT
  Age: 59 Year
  Sex: Female
  Weight: 70 kg

DRUGS (17)
  1. ORENCIA [Suspect]
     Indication: RHEUMATOID ARTHRITIS
  2. TYLENOL [Concomitant]
     Indication: PREMEDICATION
  3. BENADRYL [Concomitant]
     Indication: PREMEDICATION
  4. HYZAAR [Concomitant]
  5. ZOCOR [Concomitant]
  6. PREMARIN [Concomitant]
  7. ASPIRIN [Concomitant]
  8. GEMFIBROZIL [Concomitant]
  9. NEXIUM [Concomitant]
  10. WELLBUTRIN [Concomitant]
  11. FOLIC ACID [Concomitant]
  12. VITAMIN B-12 [Concomitant]
  13. ATENOLOL [Concomitant]
  14. TRAMADOL HCL [Concomitant]
  15. RELAFEN [Concomitant]
  16. LYRICA [Concomitant]
  17. SULFASALAZINE [Concomitant]

REACTIONS (2)
  - PRURITUS [None]
  - URTICARIA [None]
